FAERS Safety Report 5067845-9 (Version None)
Quarter: 2006Q3

REPORT INFORMATION
  Report Type: 
  Country: None (occurrence: None)
  Receive Date: 20060714
  Receipt Date: 20050531
  Transmission Date: 20061208
  Serious: Yes (Hospitalization)
  Sender: FDA-Public Use
  Company Number: PHEH2005US06092

PATIENT
  Age: 6 Month
  Sex: Female
  Weight: 8 kg

DRUGS (9)
  1. TRILEPTAL [Suspect]
     Indication: EPILEPSY
     Dosage: SEE IMAGE
     Route: 048
     Dates: start: 20050428, end: 20050401
  2. TRILEPTAL [Suspect]
     Indication: EPILEPSY
     Dosage: SEE IMAGE
     Route: 048
     Dates: end: 20050508
  3. TRILEPTAL [Suspect]
     Indication: EPILEPSY
     Dosage: SEE IMAGE
     Route: 048
     Dates: start: 20050512, end: 20050512
  4. TRILEPTAL [Suspect]
     Indication: EPILEPSY
     Dosage: SEE IMAGE
     Route: 048
     Dates: start: 20050513, end: 20050513
  5. TRILEPTAL [Suspect]
     Indication: EPILEPSY
     Dosage: SEE IMAGE
     Route: 048
     Dates: start: 20050514, end: 20050528
  6. TRILEPTAL [Suspect]
     Indication: EPILEPSY
     Dosage: SEE IMAGE
     Route: 048
     Dates: start: 20050529, end: 20050531
  7. TRILEPTAL [Suspect]
     Indication: EPILEPSY
     Dosage: SEE IMAGE
     Route: 048
     Dates: start: 20050514
  8. TRILEPTAL [Suspect]
     Indication: EPILEPSY
     Dosage: SEE IMAGE
     Route: 048
     Dates: start: 20050601
  9. PYRIDOXINE HCL [Concomitant]

REACTIONS (10)
  - BLOOD SODIUM DECREASED [None]
  - CONVULSION [None]
  - IRRITABILITY [None]
  - MOOD ALTERED [None]
  - MUSCULAR WEAKNESS [None]
  - RHINORRHOEA [None]
  - STATUS EPILEPTICUS [None]
  - URTICARIA [None]
  - VIRAL INFECTION [None]
  - VOMITING [None]
